FAERS Safety Report 16787892 (Version 1)
Quarter: 2019Q3

REPORT INFORMATION
  Report Type: Spontaneous
  Country: US (occurrence: US)
  Receive Date: 20190909
  Receipt Date: 20190909
  Transmission Date: 20191005
  Serious: No
  Sender: FDA-Public Use
  Company Number: US-STRONGBRIDGE BIOPHARMA-2019-STR-000218

PATIENT
  Sex: Female

DRUGS (1)
  1. KEVEYIS [Suspect]
     Active Substance: DICHLORPHENAMIDE
     Indication: LONG QT SYNDROME
     Dosage: 100 MG, BID
     Route: 048
     Dates: start: 20190412

REACTIONS (5)
  - Motor dysfunction [Unknown]
  - Musculoskeletal stiffness [Unknown]
  - Fatigue [Unknown]
  - Vision blurred [Unknown]
  - Off label use [Unknown]

NARRATIVE: CASE EVENT DATE: 20190412
